FAERS Safety Report 15777886 (Version 1)
Quarter: 2018Q4

REPORT INFORMATION
  Report Type: Spontaneous
  Country: US (occurrence: US)
  Receive Date: 20181231
  Receipt Date: 20181231
  Transmission Date: 20190205
  Serious: Yes (Hospitalization)
  Sender: FDA-Public Use
  Company Number: None

PATIENT
  Age: 80 Year
  Sex: Male

DRUGS (2)
  1. APIXABAN [Suspect]
     Active Substance: APIXABAN
     Indication: ATRIAL FIBRILLATION
     Route: 048
     Dates: start: 20181206, end: 20181231
  2. APIXABAN 5MG BID [Concomitant]
     Dates: start: 20181022, end: 20181206

REACTIONS (5)
  - Fall [None]
  - Melaena [None]
  - Head injury [None]
  - Loss of consciousness [None]
  - Haemorrhage intracranial [None]

NARRATIVE: CASE EVENT DATE: 20181215
